FAERS Safety Report 11213679 (Version 1)
Quarter: 2015Q2

REPORT INFORMATION
  Report Type: Spontaneous
  Country: US (occurrence: US)
  Receive Date: 20150623
  Receipt Date: 20150623
  Transmission Date: 20150821
  Serious: Yes (Death, Other)
  Sender: FDA-Public Use
  Company Number: US-MYLANLABS-2015M1019763

PATIENT

DRUGS (1)
  1. CYSTAGON [Suspect]
     Active Substance: CYSTEAMINE BITARTRATE
     Indication: AMINO ACID METABOLISM DISORDER
     Dosage: 150 MG, Q6H
     Route: 048
     Dates: start: 20011231, end: 20150603

REACTIONS (2)
  - Tracheal stenosis [Fatal]
  - Tracheal obstruction [Fatal]

NARRATIVE: CASE EVENT DATE: 20150603
